FAERS Safety Report 8765153 (Version 5)
Quarter: 2013Q2

REPORT INFORMATION
  Report Type: Report from Study
  Country: JP (occurrence: JP)
  Receive Date: 20120903
  Receipt Date: 20130618
  Transmission Date: 20140414
  Serious: Yes (Hospitalization, Other)
  Sender: FDA-Public Use
  Company Number: JP-009507513-2012SP026961

PATIENT
  Age: 64 Year
  Sex: Female
  Weight: 42 kg

DRUGS (16)
  1. PEGINTRON [Suspect]
     Indication: CHRONIC HEPATITIS C
     Dosage: 1.5 MICROGRAM PER KILOGRAM, QW
     Route: 058
     Dates: start: 20120321, end: 20120516
  2. PEGINTRON [Suspect]
     Dosage: 1.5 MICROGRAM PER KILOGRAM, QW
     Route: 058
     Dates: start: 20120620
  3. REBETOL [Suspect]
     Indication: CHRONIC HEPATITIS C
     Dosage: 400 MG, QD
     Route: 048
     Dates: start: 20120321, end: 20120411
  4. REBETOL [Suspect]
     Dosage: 200 MG, QD
     Route: 048
     Dates: start: 20120412, end: 20120524
  5. REBETOL [Suspect]
     Dosage: 200 MG, QD
     Route: 048
     Dates: start: 20120620, end: 20120731
  6. REBETOL [Suspect]
     Dosage: 300 MG, QD
     Route: 048
     Dates: start: 20120801
  7. TELAVIC [Suspect]
     Indication: CHRONIC HEPATITIS C
     Dosage: 1500 MG, QD
     Route: 048
     Dates: start: 20120321, end: 20120524
  8. URSO [Concomitant]
     Indication: CHRONIC HEPATITIS C
     Dosage: 600 MG, QD (FORMULATION: POR)
     Route: 048
  9. THYRADIN-S [Concomitant]
     Indication: HYPOTHYROIDISM
     Dosage: 75 MG, QD
     Route: 048
  10. BLOPRESS [Concomitant]
     Indication: HYPERTENSION
     Dosage: 4 MG, QD (FORMULATION: POR)
     Route: 048
  11. FAMOSTAGINE [Concomitant]
     Indication: GASTRITIS
     Dosage: 20 MG, QD (FORMULATION: POR)
     Route: 048
  12. SELBEX [Concomitant]
     Indication: GASTRITIS
     Dosage: 1.5 G, QD (FORMULATION: POR)
     Route: 048
     Dates: end: 20120523
  13. GASTER D [Concomitant]
     Indication: GASTRITIS
     Dosage: 20 MG, QD
     Route: 048
  14. LOXONIN [Concomitant]
     Indication: PROPHYLAXIS
     Dosage: 60 MG, QD PRN (FORMULATION: POR)
     Route: 048
     Dates: start: 20120321
  15. ZYLORIC [Concomitant]
     Indication: PROPHYLAXIS
     Dosage: 100 MG, QD (FORMULATION: POR)
     Route: 048
     Dates: end: 20120523
  16. NAUZELIN [Concomitant]
     Indication: PROPHYLAXIS
     Dosage: 10 MG, QD AS NEEDED (FORMULATION: POR)
     Route: 048
     Dates: end: 20120523

REACTIONS (4)
  - Decreased appetite [Recovering/Resolving]
  - Anaemia [Recovering/Resolving]
  - Anaemia [Recovering/Resolving]
  - Decreased appetite [Recovering/Resolving]
